FAERS Safety Report 22956366 (Version 3)
Quarter: 2024Q1

REPORT INFORMATION
  Report Type: Spontaneous
  Country: IT (occurrence: IT)
  Receive Date: 20230919
  Receipt Date: 20240304
  Transmission Date: 20240410
  Serious: Yes (Hospitalization, Other)
  Sender: FDA-Public Use
  Company Number: IT-AMGEN-ITASP2023153633

PATIENT
  Age: 49 Year
  Sex: Female

DRUGS (27)
  1. OXALIPLATIN [Suspect]
     Active Substance: OXALIPLATIN
     Indication: Colorectal cancer
     Dosage: 135 MILLIGRAM
     Route: 042
     Dates: start: 202106
  2. OXALIPLATIN [Suspect]
     Active Substance: OXALIPLATIN
     Dosage: 110 MILLIGRAM 20% REDUCTION
     Route: 042
     Dates: start: 202204
  3. IRINOTECAN [Suspect]
     Active Substance: IRINOTECAN
     Indication: Colorectal cancer metastatic
     Dosage: 280 MILLIGRAM OVER 1 H
     Route: 042
  4. IRINOTECAN [Suspect]
     Active Substance: IRINOTECAN
     Indication: Colorectal cancer
     Dosage: UNK
     Route: 042
     Dates: start: 202208
  5. FOLIC ACID [Suspect]
     Active Substance: FOLIC ACID
     Indication: Colorectal cancer metastatic
     Dosage: 300 MILLIGRAM
     Route: 065
  6. FOLIC ACID [Suspect]
     Active Substance: FOLIC ACID
     Dosage: UNK
     Route: 065
     Dates: start: 2018
  7. FOLIC ACID [Suspect]
     Active Substance: FOLIC ACID
     Dosage: 300 MILLIGRAM
     Route: 042
     Dates: start: 202207
  8. FLUOROURACIL [Suspect]
     Active Substance: FLUOROURACIL
     Indication: Colorectal cancer
     Dosage: 600 MILLIGRAM  + 4,000 MG IV
     Route: 042
     Dates: start: 202106
  9. FLUOROURACIL [Suspect]
     Active Substance: FLUOROURACIL
     Indication: Rectal adenocarcinoma
     Dosage: 500 MILLIGRAM (20% REDUCTION) 2,800 MG (30% REDUCTION) IV INFUSION FOR 48 H,
     Route: 042
     Dates: start: 202204
  10. FLUOROURACIL [Suspect]
     Active Substance: FLUOROURACIL
     Indication: Colorectal cancer metastatic
     Dosage: 400 MILLIGRAM
     Route: 042
     Dates: start: 202204
  11. FLUOROURACIL [Suspect]
     Active Substance: FLUOROURACIL
     Dosage: 2800 MILLIGRAM IV 48 H INFUSION
     Route: 042
     Dates: start: 202204
  12. FLUOROURACIL [Suspect]
     Active Substance: FLUOROURACIL
     Dosage: 500 MILLIGRAM
     Route: 040
     Dates: start: 202207
  13. FLUOROURACIL [Suspect]
     Active Substance: FLUOROURACIL
     Dosage: UNK
     Route: 042
     Dates: start: 202208
  14. LEUCOVORIN [Suspect]
     Active Substance: LEUCOVORIN\LEUCOVORIN CALCIUM
     Indication: Colorectal cancer
     Dosage: 300 MILLIGRAM OVER 2 H
     Route: 042
     Dates: start: 202106
  15. LEUCOVORIN [Suspect]
     Active Substance: LEUCOVORIN\LEUCOVORIN CALCIUM
     Dosage: UNK
     Route: 042
     Dates: start: 202208
  16. BEVACIZUMAB [Suspect]
     Active Substance: BEVACIZUMAB
     Indication: Colorectal cancer
     Dosage: 270 MILLIGRAM
     Route: 042
     Dates: start: 202207, end: 2022
  17. BEVACIZUMAB [Suspect]
     Active Substance: BEVACIZUMAB
     Indication: Rectal adenocarcinoma
  18. BEVACIZUMAB [Suspect]
     Active Substance: BEVACIZUMAB
     Indication: Colorectal cancer metastatic
  19. PANITUMUMAB [Suspect]
     Active Substance: PANITUMUMAB
     Indication: Colorectal cancer
     Dosage: 320 MILLIGRAM
     Route: 042
     Dates: start: 202106
  20. PANITUMUMAB [Suspect]
     Active Substance: PANITUMUMAB
     Indication: Rectal adenocarcinoma
     Dosage: 320 MILLIGRAM
     Route: 042
     Dates: start: 202203
  21. PANITUMUMAB [Suspect]
     Active Substance: PANITUMUMAB
     Dosage: 320 MILLIGRAM
     Route: 042
     Dates: start: 202204, end: 2022
  22. LEUCOVORIN CALCIUM [Suspect]
     Active Substance: LEUCOVORIN CALCIUM
     Indication: Rectal adenocarcinoma
     Dosage: 300 MILLIGRAM
     Route: 041
     Dates: start: 202106
  23. LEUCOVORIN CALCIUM [Suspect]
     Active Substance: LEUCOVORIN CALCIUM
     Dosage: UNK
     Route: 065
     Dates: start: 2018, end: 2020
  24. OXALIPLATIN [Suspect]
     Active Substance: OXALIPLATIN
     Indication: Rectal adenocarcinoma
     Dosage: 135 MILLIGRAM
     Route: 041
     Dates: start: 202106
  25. OXALIPLATIN [Suspect]
     Active Substance: OXALIPLATIN
     Dosage: 110 MILLIGRAM
     Route: 041
     Dates: start: 202204
  26. TIPIRACIL HYDROCHLORIDE\TRIFLURIDINE [Concomitant]
     Active Substance: TIPIRACIL HYDROCHLORIDE\TRIFLURIDINE
     Indication: Product used for unknown indication
     Dosage: UNK 110/45 MG QD
     Route: 048
     Dates: start: 202209
  27. CAPECITABINE [Concomitant]
     Active Substance: CAPECITABINE
     Indication: Rectal adenocarcinoma
     Dosage: UNK
     Route: 065

REACTIONS (7)
  - Thrombocytopenic purpura [Recovered/Resolved]
  - Colorectal cancer [Unknown]
  - Thrombocytopenia [Unknown]
  - Antinuclear antibody positive [Unknown]
  - Chills [Unknown]
  - Blood immunoglobulin G increased [Unknown]
  - Back pain [Unknown]

NARRATIVE: CASE EVENT DATE: 20200501
